FAERS Safety Report 17348771 (Version 6)
Quarter: 2020Q3

REPORT INFORMATION
  Report Type: Spontaneous
  Country: US (occurrence: US)
  Receive Date: 20200130
  Receipt Date: 20200727
  Transmission Date: 20201102
  Serious: Yes (Other)
  Sender: FDA-Public Use
  Company Number: US-PFIZER INC-2015094410

PATIENT
  Age: 85 Year
  Sex: Female
  Weight: 74.84 kg

DRUGS (2)
  1. LYRICA [Suspect]
     Active Substance: PREGABALIN
     Indication: ARTHRALGIA
     Dosage: 100 MG, 3X/DAY
     Route: 048
     Dates: end: 20200124
  2. LYRICA [Suspect]
     Active Substance: PREGABALIN
     Indication: PAIN IN EXTREMITY
     Dosage: 1 DF, UNK
     Dates: start: 20200127

REACTIONS (8)
  - Coronavirus infection [Unknown]
  - Malaise [Recovering/Resolving]
  - Drug withdrawal syndrome [Unknown]
  - Product dispensing error [Unknown]
  - Memory impairment [Unknown]
  - Hypoacusis [Unknown]
  - Pharyngeal disorder [Unknown]
  - Weight increased [Unknown]
